FAERS Safety Report 13599447 (Version 4)
Quarter: 2017Q3

REPORT INFORMATION
  Report Type: Spontaneous
  Country: CH (occurrence: CH)
  Receive Date: 20170531
  Receipt Date: 20170911
  Transmission Date: 20171127
  Serious: Yes (Congenital Anomaly)
  Sender: FDA-Public Use
  Company Number: CH-TAKEDA-2017TUS011025

PATIENT
  Age: 0 Year
  Sex: Female
  Weight: 3.55 kg

DRUGS (2)
  1. VALTREX [Suspect]
     Active Substance: VALACYCLOVIR HYDROCHLORIDE
     Indication: ANTIVIRAL PROPHYLAXIS
     Dosage: UNK
     Route: 064
     Dates: start: 201703
  2. BRINTELLIX [Suspect]
     Active Substance: VORTIOXETINE HYDROBROMIDE
     Indication: PRODUCT USED FOR UNKNOWN INDICATION
     Dosage: UNK
     Route: 064
     Dates: start: 201703

REACTIONS (5)
  - Aorta hypoplasia [Not Recovered/Not Resolved]
  - Exposure during breast feeding [Unknown]
  - Persistent left superior vena cava [Not Recovered/Not Resolved]
  - Bicuspid aortic valve [Not Recovered/Not Resolved]
  - Foetal exposure during pregnancy [Recovered/Resolved]

NARRATIVE: CASE EVENT DATE: 201703
